FAERS Safety Report 18848413 (Version 1)
Quarter: 2021Q1

REPORT INFORMATION
  Report Type: Spontaneous
  Country: US (occurrence: US)
  Receive Date: 20210204
  Receipt Date: 20210204
  Transmission Date: 20210419
  Serious: No
  Sender: FDA-Public Use
  Company Number: US-BAYER-2021-048065

PATIENT
  Age: 50 Year
  Sex: Female

DRUGS (1)
  1. GADAVIST [Suspect]
     Active Substance: GADOBUTROL
     Indication: MAGNETIC RESONANCE IMAGING
     Dosage: 8 ML, ONCE
     Route: 042
     Dates: start: 20210127, end: 20210127

REACTIONS (1)
  - Nausea [None]

NARRATIVE: CASE EVENT DATE: 20210127
